FAERS Safety Report 5977328-7 (Version None)
Quarter: 2008Q4

REPORT INFORMATION
  Report Type: 
  Country: None (occurrence: None)
  Receive Date: 20081203
  Receipt Date: 20081124
  Transmission Date: 20090506
  Serious: Yes (Hospitalization)
  Sender: FDA-Public Use
  Company Number: PHHY2008FR29775

PATIENT
  Sex: Male

DRUGS (3)
  1. NEORAL [Suspect]
     Indication: SYSTEMIC LUPUS ERYTHEMATOSUS
     Dosage: 75 MG, BID
     Dates: start: 20080516, end: 20080519
  2. NEORAL [Suspect]
     Dosage: 50 MG, BID
     Dates: start: 20080605
  3. TOPIRAMATE [Suspect]
     Indication: EPILEPSY
     Dosage: UNK
     Route: 048
     Dates: start: 20080507, end: 20080523

REACTIONS (4)
  - APHASIA [None]
  - LUPUS VASCULITIS [None]
  - PSYCHOMOTOR RETARDATION [None]
  - TREMOR [None]
